FAERS Safety Report 16012596 (Version 1)
Quarter: 2019Q1

REPORT INFORMATION
  Report Type: Spontaneous
  Country: US (occurrence: US)
  Receive Date: 20190227
  Receipt Date: 20190227
  Transmission Date: 20190418
  Serious: No
  Sender: FDA-Public Use
  Company Number: US-BAYER-2019-041546

PATIENT
  Age: 71 Year
  Sex: Male
  Weight: 79 kg

DRUGS (6)
  1. PROBIOTICS NOS [Concomitant]
     Active Substance: PROBIOTICS NOS
  2. LIPITOR [Concomitant]
     Active Substance: ATORVASTATIN CALCIUM
  3. HCTZ [Concomitant]
     Active Substance: HYDROCHLOROTHIAZIDE
  4. FISH OIL [Concomitant]
     Active Substance: FISH OIL
  5. ALEVE [Suspect]
     Active Substance: NAPROXEN SODIUM
     Indication: PAIN
     Dosage: UNK(2 IN MORNING AND 2 AT NIGHT   )
     Route: 048
  6. ONE-A-DAY MENS VITACRAVES GUMMIES [Suspect]
     Active Substance: MINERALS\VITAMINS

REACTIONS (1)
  - Expired product administered [Unknown]
